FAERS Safety Report 4541783-X (Version None)
Quarter: 2004Q4

REPORT INFORMATION
  Report Type: 
  Country: None (occurrence: None)
  Receive Date: 20041230
  Receipt Date: 20041221
  Transmission Date: 20050328
  Serious: Yes (Death, Hospitalization)
  Sender: FDA-Public Use
  Company Number: FR-BRISTOL-MYERS SQUIBB COMPANY-12804266

PATIENT
  Age: 64 Year
  Sex: Male

DRUGS (7)
  1. AMIKIN [Suspect]
     Indication: PSEUDOMONAL SEPSIS
     Route: 042
     Dates: start: 20041027, end: 20041103
  2. AMIKIN [Suspect]
     Indication: CELLULITIS
     Route: 042
     Dates: start: 20041027, end: 20041103
  3. MYLOTARG [Suspect]
     Route: 042
     Dates: start: 20041006
  4. AZACTAM [Concomitant]
     Indication: PSEUDOMONAL SEPSIS
     Dates: start: 20041028
  5. AZACTAM [Concomitant]
     Indication: CELLULITIS
     Dates: start: 20041028
  6. TRIFLUCAN [Concomitant]
     Dates: start: 20041015
  7. MOPRAL [Concomitant]
     Dates: start: 20041011

REACTIONS (1)
  - VENOOCCLUSIVE LIVER DISEASE [None]
